FAERS Safety Report 6438241-4 (Version None)
Quarter: 2009Q4

REPORT INFORMATION
  Report Type: 
  Country: None (occurrence: None)
  Receive Date: 20091112
  Receipt Date: 20081127
  Transmission Date: 20100525
  Serious: No
  Sender: FDA-Public Use
  Company Number: US-ASTRAZENECA-2009UW17360

PATIENT
  Sex: Male

DRUGS (1)
  1. PRILOSEC OTC [Suspect]
     Indication: NAUSEA
     Dosage: 1 TABLET, 1 /DAY FOR 1 DAY
     Route: 048
     Dates: start: 20081127, end: 20081127

REACTIONS (4)
  - GENERALISED ERYTHEMA [None]
  - PALLOR [None]
  - PRURITUS GENERALISED [None]
  - SWOLLEN TONGUE [None]
